FAERS Safety Report 19815452 (Version 4)
Quarter: 2021Q4

REPORT INFORMATION
  Report Type: Spontaneous
  Country: US (occurrence: US)
  Receive Date: 20210910
  Receipt Date: 20211015
  Transmission Date: 20220303
  Serious: Yes (Other)
  Sender: FDA-Public Use
  Company Number: US-ROCHE-2905320

PATIENT

DRUGS (2)
  1. ACTIVASE [Suspect]
     Active Substance: ALTEPLASE
     Indication: Product used for unknown indication
     Route: 065
  2. ACTIVASE [Suspect]
     Active Substance: ALTEPLASE

REACTIONS (4)
  - Device malfunction [Unknown]
  - Device defective [Unknown]
  - Inappropriate schedule of product administration [Unknown]
  - No adverse event [Unknown]
